FAERS Safety Report 21983461 (Version 1)
Quarter: 2023Q1

REPORT INFORMATION
  Report Type: Spontaneous
  Country: SE (occurrence: SE)
  Receive Date: 20230213
  Receipt Date: 20230213
  Transmission Date: 20230417
  Serious: Yes (Other)
  Sender: FDA-Public Use
  Company Number: None

PATIENT
  Sex: Female
  Weight: 65 kg

DRUGS (1)
  1. NUVARING [Suspect]
     Active Substance: ETHINYL ESTRADIOL\ETONOGESTREL
     Indication: Contraception
     Dosage: 0,120 MG/0,015 MG PER 24 HOURS
     Route: 067
     Dates: start: 20180613, end: 20201001

REACTIONS (6)
  - Vulvovaginal dryness [Recovered/Resolved]
  - Libido decreased [Recovered/Resolved]
  - Sexual dysfunction [Recovered/Resolved]
  - Dysphoria [Recovered/Resolved]
  - Depressed mood [Recovered/Resolved]
  - Female sexual arousal disorder [Recovered/Resolved]

NARRATIVE: CASE EVENT DATE: 20180613
